FAERS Safety Report 10559507 (Version 1)
Quarter: 2014Q4

REPORT INFORMATION
  Report Type: Spontaneous
  Country: US (occurrence: None)
  Receive Date: 20141031
  Receipt Date: 20141031
  Transmission Date: 20150529
  Serious: No
  Sender: FDA-Public Use
  Company Number: None

PATIENT
  Age: 69 Year
  Sex: Male
  Weight: 92.3 kg

DRUGS (18)
  1. POMALYST [Suspect]
     Active Substance: POMALIDOMIDE
     Indication: PLASMA CELL MYELOMA
     Route: 048
     Dates: start: 201404
  2. SPIRONOLACTONE (ALDACTONE) [Concomitant]
  3. IPRATROPIUM (ATROVENT) [Concomitant]
  4. SACCHAROMYCES BOULARDII (FLORASTOR) [Concomitant]
  5. CARVEDILOL (COREG) [Concomitant]
  6. FILGRASTIM (NEUPOGEN) [Concomitant]
  7. CEFPODOXIME (VANTIN) [Concomitant]
  8. WARFARIN (COUMADIN) [Concomitant]
  9. AMIODARONE (CORDARONE) [Concomitant]
  10. DEXAMETHASONE (DECADRON) [Concomitant]
  11. ATORVASTATIN (LIPITOR) [Concomitant]
  12. ASPIRIN. [Concomitant]
     Active Substance: ASPIRIN
  13. ZITHROMAX [Concomitant]
     Active Substance: AZITHROMYCIN DIHYDRATE
  14. FUROSEMIDE (LASIX) [Concomitant]
  15. RANEXA [Concomitant]
     Active Substance: RANOLAZINE
  16. LISINOPRIL (PRINIVIL/ZESTRIL) [Concomitant]
  17. NITROGLYCERIN (NITROSTAT) [Concomitant]
  18. ONDANSETRON (ZOFRAN) [Concomitant]

REACTIONS (1)
  - Fatigue [None]

NARRATIVE: CASE EVENT DATE: 20140820
